FAERS Safety Report 10649465 (Version 1)
Quarter: 2014Q4

REPORT INFORMATION
  Report Type: Spontaneous
  Country: US (occurrence: US)
  Receive Date: 20141212
  Receipt Date: 20141212
  Transmission Date: 20150529
  Serious: Yes (Other)
  Sender: FDA-Public Use
  Company Number: US-PFIZER INC-2014335363

PATIENT
  Age: 63 Year
  Sex: Male

DRUGS (4)
  1. BENZYLPENICILLIN [Concomitant]
     Active Substance: PENICILLIN G
     Indication: LUNG DISORDER
  2. PENICILLIN G PROCAINE. [Suspect]
     Active Substance: PENICILLIN G PROCAINE
     Indication: CHRONIC OBSTRUCTIVE PULMONARY DISEASE
  3. BENZYLPENICILLIN [Concomitant]
     Active Substance: PENICILLIN G
     Indication: CHRONIC OBSTRUCTIVE PULMONARY DISEASE
     Dosage: 600000 IU (UNITS), 4X/DAY (EVERY 6 HOURS)
     Route: 042
  4. PENICILLIN G PROCAINE. [Suspect]
     Active Substance: PENICILLIN G PROCAINE
     Indication: LUNG DISORDER
     Dosage: 600000 IU (UNITS), UNK
     Route: 042

REACTIONS (7)
  - Cold sweat [Recovered/Resolved]
  - Anaphylactic reaction [Recovered/Resolved]
  - Toxicity to various agents [Recovered/Resolved]
  - Pulse abnormal [Recovered/Resolved]
  - Wrong drug administered [Recovered/Resolved]
  - Anxiety [Recovered/Resolved]
  - Dizziness [Recovered/Resolved]
